FAERS Safety Report 9752071 (Version 1)
Quarter: 2013Q4

REPORT INFORMATION
  Report Type: Spontaneous
  Country: CA (occurrence: CA)
  Receive Date: 20131213
  Receipt Date: 20131213
  Transmission Date: 20140711
  Serious: Yes (Other)
  Sender: FDA-Public Use
  Company Number: PHHY2013CA144010

PATIENT
  Age: 81 Year
  Sex: Male

DRUGS (3)
  1. ONBREZ [Suspect]
     Dosage: ONCE EVERY MORNING
  2. SPIRIVA [Concomitant]
     Dosage: ONCE EVERY MORNING
  3. CREON [Concomitant]
     Indication: GLAUCOMA
     Dosage: UNK UKN, UNK

REACTIONS (3)
  - Hypotension [Unknown]
  - Dizziness [Unknown]
  - Loss of consciousness [Unknown]
